FAERS Safety Report 6734571-7 (Version None)
Quarter: 2010Q2

REPORT INFORMATION
  Report Type: 
  Country: None (occurrence: None)
  Receive Date: 20100520
  Receipt Date: 20100329
  Transmission Date: 20101027
  Serious: No
  Sender: FDA-Public Use
  Company Number: US-ALLERGAN-1003521US

PATIENT
  Age: 84 Year
  Sex: Male

DRUGS (9)
  1. SANCTURA XR [Suspect]
     Indication: HYPERTONIC BLADDER
     Dosage: UNK
  2. CRESTOR [Concomitant]
     Dosage: 20 MG, QD
  3. ATENOLOL [Concomitant]
     Dosage: 50 MG, QD
  4. ISOSORBIDE [Concomitant]
     Dosage: 30 MG, QD
  5. OMEPRAZOLE [Concomitant]
     Dosage: 20 MG, BID
  6. FENOFIBRATE [Concomitant]
     Dosage: 54 MG, QHS
  7. FLOVENT HFA [Concomitant]
     Dosage: 220 A?G, BID
  8. CHOLESTYRAMINE [Concomitant]
  9. MULTI-VITAMINS [Concomitant]

REACTIONS (2)
  - CONSTIPATION [None]
  - VENOUS INSUFFICIENCY [None]
